FAERS Safety Report 10098977 (Version 1)
Quarter: 2014Q2

REPORT INFORMATION
  Report Type: Spontaneous
  Country: GB (occurrence: GB)
  Receive Date: 20140423
  Receipt Date: 20140423
  Transmission Date: 20141212
  Serious: Yes (Other)
  Sender: FDA-Public Use
  Company Number: PHHY2014GB046029

PATIENT
  Sex: 0

DRUGS (4)
  1. METFORMIN [Suspect]
     Indication: DIABETES MELLITUS
     Dosage: UNK UKN, UNK
  2. IBUPROFEN [Suspect]
     Dosage: UNK UKN, UNK
  3. APIXABAN [Interacting]
     Indication: HIP ARTHROPLASTY
     Dosage: UNK UKN, UNK
     Route: 065
  4. APIXABAN [Interacting]
     Indication: KNEE ARTHROPLASTY
     Dosage: UNK UKN, UNK

REACTIONS (2)
  - Blood creatinine abnormal [Unknown]
  - Drug interaction [Unknown]
